FAERS Safety Report 12495666 (Version 1)
Quarter: 2016Q2

REPORT INFORMATION
  Report Type: Spontaneous
  Country: US (occurrence: US)
  Receive Date: 20160624
  Receipt Date: 20160624
  Transmission Date: 20160815
  Serious: No
  Sender: FDA-Public Use
  Company Number: US-ALLERGAN-1637506US

PATIENT
  Sex: Female

DRUGS (2)
  1. BLEPH-10 [Suspect]
     Active Substance: SULFACETAMIDE SODIUM
     Indication: CATARACT OPERATION
     Route: 047
  2. XELJANZ [Concomitant]
     Active Substance: TOFACITINIB CITRATE
     Indication: RHEUMATOID ARTHRITIS
     Dosage: 5 MG, UNK
     Route: 048
     Dates: start: 2014

REACTIONS (2)
  - Off label use [Unknown]
  - Drug hypersensitivity [Recovered/Resolved]
